FAERS Safety Report 6016394 (Version 12)
Quarter: 2013Q2

REPORT INFORMATION
  Report Type: Spontaneous
  Country: US (occurrence: US)
  Receive Date: 20060331
  Receipt Date: 20130408
  Transmission Date: 20140414
  Serious: Yes (Death, Other)
  Sender: FDA-Public Use
  Company Number: PHEH2006US03723

PATIENT
  Age: 64 Year
  Sex: Female

DRUGS (45)
  1. ZOMETA [Suspect]
     Indication: BREAST CANCER METASTATIC
     Dosage: 4 MG, QMO
     Route: 042
     Dates: start: 20020617, end: 20050831
  2. FEMARA [Concomitant]
     Dosage: 5 MG, QD
     Route: 048
  3. FEMARA [Concomitant]
     Dosage: 2.5 MG, DAILY
     Dates: start: 20020218
  4. CYTOXAN [Concomitant]
     Dosage: 600 MG/M2, X 6 CYCLES
  5. CYTOXAN [Concomitant]
     Dosage: 600 MG/M2, X 6 CYCLES
  6. LIPITOR                                 /NET/ [Concomitant]
  7. LISINOPRIL [Concomitant]
  8. FUROSEMIDE [Concomitant]
  9. K-DUR [Concomitant]
  10. TOPROL XL [Concomitant]
  11. VICODIN [Concomitant]
  12. PENICILLIN VK [Concomitant]
  13. XELODA [Concomitant]
  14. ZEBETA [Concomitant]
  15. WARFARIN [Concomitant]
  16. NORCO [Concomitant]
  17. ASPIRIN ^BAYER^ [Concomitant]
  18. MULTIVITAMIN ^LAPPE^ [Concomitant]
     Dosage: 1 DF, QD
  19. FASLODEX [Concomitant]
  20. AUGMENTIN                               /SCH/ [Concomitant]
  21. POTASSIUM CHLORIDE [Concomitant]
  22. ADRIAMYCIN [Concomitant]
  23. 5-FU [Concomitant]
  24. TAXOTERE [Concomitant]
  25. ESTRADIOL [Concomitant]
  26. TAMOXIFEN [Concomitant]
  27. AROMASIN [Concomitant]
  28. COUMADIN ^BOOTS^ [Concomitant]
     Dosage: 2 MG, UNK
  29. COUMADIN ^BOOTS^ [Concomitant]
     Dosage: 5 MG, QD
     Route: 048
     Dates: start: 20030705
  30. COUMADIN ^BOOTS^ [Concomitant]
     Dosage: 7.5 MG, QD
     Route: 048
     Dates: start: 20030706
  31. PERIDEX [Concomitant]
  32. TETRACYCLINE [Concomitant]
  33. RITUXAN [Concomitant]
  34. DECADRON                                /CAN/ [Concomitant]
  35. HYDROCODONE [Concomitant]
  36. FENTANYL [Concomitant]
     Route: 042
  37. VERSED [Concomitant]
     Dosage: 1 MG, UNK
     Route: 042
  38. REGLAN [Concomitant]
     Dosage: 10 MG, UNK
     Route: 042
  39. TIGAN [Concomitant]
     Route: 030
  40. ANCEF [Concomitant]
     Route: 042
  41. DEMEROL [Concomitant]
  42. DARVOCET-N [Concomitant]
  43. KEFLEX [Concomitant]
     Dosage: 500 MG, QID
     Route: 048
  44. VISTARIL [Concomitant]
  45. COMPAZINE [Concomitant]

REACTIONS (91)
  - Prothrombin time prolonged [Unknown]
  - Menorrhagia [Unknown]
  - Epistaxis [Unknown]
  - Hypertension [Unknown]
  - Influenza [Unknown]
  - Hyperlipidaemia [Unknown]
  - Diarrhoea [Unknown]
  - Anaemia [Unknown]
  - Sinusitis [Unknown]
  - Asthenia [Recovering/Resolving]
  - Sinus arrhythmia [Unknown]
  - Pain in extremity [Unknown]
  - Haemoglobin decreased [Unknown]
  - Haematocrit decreased [Unknown]
  - Blood urea decreased [Unknown]
  - Cachexia [Unknown]
  - Supraventricular extrasystoles [Unknown]
  - Periodontal disease [Unknown]
  - Osteoarthritis [Unknown]
  - Spinal osteoarthritis [Unknown]
  - Osteopenia [Unknown]
  - Emphysema [Unknown]
  - Osteolysis [Unknown]
  - Hilar lymphadenopathy [Unknown]
  - Pleural effusion [Unknown]
  - Pulmonary mass [Unknown]
  - Cerebellar atrophy [Unknown]
  - Goitre [Unknown]
  - Colon cancer [Unknown]
  - Thyroid neoplasm [Unknown]
  - Hiatus hernia [Unknown]
  - Adenocarcinoma [Unknown]
  - Deep vein thrombosis [Unknown]
  - Oedema peripheral [Unknown]
  - Mitral valve disease [Unknown]
  - Arteriosclerosis coronary artery [Unknown]
  - Atelectasis [Unknown]
  - Pleural fibrosis [Unknown]
  - Dyspnoea [Unknown]
  - Orthopnoea [Unknown]
  - Scar [Unknown]
  - Metastases to chest wall [Unknown]
  - Malignant neoplasm progression [Unknown]
  - Chest wall mass [Unknown]
  - Chest wall necrosis [Unknown]
  - Wound secretion [Unknown]
  - Back pain [Unknown]
  - Thermal burn [Unknown]
  - Inflammation [Unknown]
  - Blood alkaline phosphatase increased [Unknown]
  - Carbohydrate antigen 15-3 increased [Unknown]
  - Pelvic fracture [Unknown]
  - Skin mass [Unknown]
  - Discomfort [Unknown]
  - Swollen tongue [Unknown]
  - Bone swelling [Unknown]
  - Metastases to skin [Unknown]
  - Musculoskeletal pain [Unknown]
  - Lymphadenopathy mediastinal [Unknown]
  - Death [Fatal]
  - Bone lesion [Unknown]
  - Skin lesion [Unknown]
  - Osteonecrosis of jaw [Not Recovered/Not Resolved]
  - Osteomyelitis chronic [Not Recovered/Not Resolved]
  - Infection [Not Recovered/Not Resolved]
  - Bone fragmentation [Unknown]
  - Post procedural discharge [Not Recovered/Not Resolved]
  - Dysgeusia [Not Recovered/Not Resolved]
  - Bone disorder [Not Recovered/Not Resolved]
  - Dental caries [Not Recovered/Not Resolved]
  - Osteomyelitis [Not Recovered/Not Resolved]
  - Fistula [Not Recovered/Not Resolved]
  - Soft tissue infection [Not Recovered/Not Resolved]
  - Erythema [Not Recovered/Not Resolved]
  - Local swelling [Not Recovered/Not Resolved]
  - Primary sequestrum [Unknown]
  - Pain [Not Recovered/Not Resolved]
  - Purulent discharge [Not Recovered/Not Resolved]
  - Eating disorder [Not Recovered/Not Resolved]
  - Abscess jaw [Unknown]
  - Staphylococcal infection [Not Recovered/Not Resolved]
  - Pain in jaw [Unknown]
  - Actinomycosis [Not Recovered/Not Resolved]
  - Injury [Unknown]
  - Physical disability [Unknown]
  - Deformity [Unknown]
  - Myocardial infarction [Unknown]
  - Cardiac failure congestive [Unknown]
  - Metastases to bone [Unknown]
  - Blood pressure decreased [Unknown]
  - International normalised ratio increased [Unknown]
